FAERS Safety Report 24236489 (Version 1)
Quarter: 2024Q3

REPORT INFORMATION
  Report Type: Spontaneous
  Country: JP (occurrence: JP)
  Receive Date: 20240822
  Receipt Date: 20240822
  Transmission Date: 20241017
  Serious: Yes (Other)
  Sender: ROCHE
  Company Number: JP-CHEPLA-2022007587

PATIENT
  Sex: Female

DRUGS (13)
  1. VALGANCICLOVIR [Suspect]
     Active Substance: VALGANCICLOVIR
     Indication: Product used for unknown indication
     Route: 048
  2. VALGANCICLOVIR [Suspect]
     Active Substance: VALGANCICLOVIR
     Dosage: ONCE IN 2 DAY
     Route: 048
  3. GANCICLOVIR [Suspect]
     Active Substance: GANCICLOVIR
     Indication: Product used for unknown indication
     Dosage: IV DRIP
     Route: 042
  4. ETIZOLAM [Suspect]
     Active Substance: ETIZOLAM
     Indication: Product used for unknown indication
     Route: 048
  5. ETHYL LOFLAZEPATE [Concomitant]
     Active Substance: ETHYL LOFLAZEPATE
     Route: 048
  6. XYLOCAINE [Concomitant]
     Active Substance: LIDOCAINE HYDROCHLORIDE\LIDOCAINE HYDROCHLORIDE ANHYDROUS
     Route: 065
  7. XYLOCAINE [Concomitant]
     Active Substance: LIDOCAINE HYDROCHLORIDE\LIDOCAINE HYDROCHLORIDE ANHYDROUS
     Route: 065
  8. ATROPINE SULFATE [Concomitant]
     Active Substance: ATROPINE SULFATE
     Route: 065
  9. PENTAZOCINE HYDROCHLORIDE [Concomitant]
     Active Substance: PENTAZOCINE HYDROCHLORIDE
     Route: 065
  10. FLUMAZENIL [Concomitant]
     Active Substance: FLUMAZENIL
     Route: 065
  11. Dormicum [Concomitant]
     Route: 065
  12. MICAFUNGIN SODIUM [Concomitant]
     Active Substance: MICAFUNGIN SODIUM
     Route: 065
  13. PREDONINE [Concomitant]
     Active Substance: PREDNISOLONE
     Route: 065

REACTIONS (10)
  - Cataract [Unknown]
  - Nephropathy [Unknown]
  - Nephrotic syndrome [Unknown]
  - Dizziness [Unknown]
  - Hyperhidrosis [Unknown]
  - Vision blurred [Unknown]
  - Oedema [Unknown]
  - Visual impairment [Unknown]
  - Inappropriate schedule of product administration [Unknown]
  - Lung opacity [Unknown]
